FAERS Safety Report 17583090 (Version 2)
Quarter: 2020Q4

REPORT INFORMATION
  Report Type: Spontaneous
  Country: FR (occurrence: FR)
  Receive Date: 20200325
  Receipt Date: 20201028
  Transmission Date: 20210113
  Serious: Yes (Hospitalization)
  Sender: FDA-Public Use
  Company Number: FR-TEVA-2020-FR-1209115

PATIENT
  Age: 87 Year
  Sex: Female
  Weight: 98 kg

DRUGS (10)
  1. KARDEGIC [Concomitant]
     Active Substance: ASPIRIN DL-LYSINE
  2. ZAMUDOL [Concomitant]
     Active Substance: TRAMADOL HYDROCHLORIDE
  3. ALDACTONE [Concomitant]
     Active Substance: SPIRONOLACTONE
  4. ZYMAD [Concomitant]
     Active Substance: CHOLECALCIFEROL
  5. ISOPTINE [Concomitant]
     Active Substance: VERAPAMIL HYDROCHLORIDE
  6. ROSUVASTATINE [Concomitant]
     Active Substance: ROSUVASTATIN
  7. DAFALGAN [Concomitant]
     Active Substance: ACETAMINOPHEN
  8. AMOXICILLINE [Suspect]
     Active Substance: AMOXICILLIN
     Indication: ERYSIPELAS
     Route: 048
     Dates: start: 20200221, end: 20200224
  9. SERESTA [Concomitant]
     Active Substance: OXAZEPAM
  10. PANTOPRAZOLE [Concomitant]
     Active Substance: PANTOPRAZOLE

REACTIONS (1)
  - Acute generalised exanthematous pustulosis [Recovering/Resolving]

NARRATIVE: CASE EVENT DATE: 20200224
